FAERS Safety Report 4483762-7 (Version None)
Quarter: 2004Q4

REPORT INFORMATION
  Report Type: 
  Country: None (occurrence: None)
  Receive Date: 20041025
  Receipt Date: 20040819
  Transmission Date: 20050328
  Serious: Yes (Hospitalization, Other)
  Sender: FDA-Public Use
  Company Number: US-BRISTOL-MYERS SQUIBB COMPANY-12676250

PATIENT
  Age: 50 Year
  Sex: Female

DRUGS (1)
  1. SERZONE [Suspect]
     Dates: start: 20001111, end: 20020201

REACTIONS (9)
  - ASTHMA [None]
  - CHOLELITHIASIS [None]
  - EAR PAIN [None]
  - FAECAL INCONTINENCE [None]
  - FEELING ABNORMAL [None]
  - GALLBLADDER DISORDER [None]
  - HEPATIC FUNCTION ABNORMAL [None]
  - SENSATION OF PRESSURE IN EAR [None]
  - URINARY INCONTINENCE [None]
